FAERS Safety Report 11276136 (Version 2)
Quarter: 2015Q3

REPORT INFORMATION
  Report Type: Spontaneous
  Country: US (occurrence: US)
  Receive Date: 20150716
  Receipt Date: 20150727
  Transmission Date: 20151125
  Serious: Yes (Hospitalization)
  Sender: FDA-Public Use
  Company Number: US-GLAXOSMITHKLINE-US2014GSK054561

PATIENT
  Age: 59 Year
  Sex: Male
  Weight: 125.17 kg

DRUGS (32)
  1. VOTRIENT [Suspect]
     Active Substance: PAZOPANIB HYDROCHLORIDE
     Indication: MALIGNANT NEOPLASM OF RENAL PELVIS
     Dosage: 800 MG, QD
     Route: 048
     Dates: start: 20141209, end: 20141218
  2. AMLODIPINE BESYLATE. [Concomitant]
     Active Substance: AMLODIPINE BESYLATE
  3. VOLTAREN [Concomitant]
     Active Substance: DICLOFENAC SODIUM
  4. ONDANSETRON HCL [Concomitant]
     Active Substance: ONDANSETRON HYDROCHLORIDE
  5. PROCRIT [Concomitant]
     Active Substance: ERYTHROPOIETIN
  6. CIALIS [Concomitant]
     Active Substance: TADALAFIL
  7. PLAVIX [Concomitant]
     Active Substance: CLOPIDOGREL BISULFATE
  8. ASPIRIN. [Concomitant]
     Active Substance: ASPIRIN
  9. URIBEL [Concomitant]
     Active Substance: HYOSCYAMINE SULFATE\METHENAMINE\METHYLENE BLUE\PHENYL SALICYLATE\SODIUM PHOSPHATE, MONOBASIC, MONOHYDRATE
  10. PRAVASTATIN SODIUM. [Concomitant]
     Active Substance: PRAVASTATIN SODIUM
  11. VOTRIENT [Suspect]
     Active Substance: PAZOPANIB HYDROCHLORIDE
     Dosage: 800 MG, QD
     Route: 048
     Dates: start: 20141205
  12. TAMSULOSIN [Concomitant]
     Active Substance: TAMSULOSIN
  13. ATORVASTATIN CALCIUM. [Concomitant]
     Active Substance: ATORVASTATIN CALCIUM
  14. HYDROCODONE BITARTRATE AND ACETAMINOPHEN [Concomitant]
     Active Substance: ACETAMINOPHEN\HYDROCODONE BITARTRATE
  15. GABAPENTIN. [Concomitant]
     Active Substance: GABAPENTIN
  16. HYDROCHLOROTHIAZIDE. [Concomitant]
     Active Substance: HYDROCHLOROTHIAZIDE
  17. LISINOPRIL. [Concomitant]
     Active Substance: LISINOPRIL
  18. LEVOFLOXACIN. [Concomitant]
     Active Substance: LEVOFLOXACIN
  19. ALPRAZOLAM. [Concomitant]
     Active Substance: ALPRAZOLAM
  20. CLONIDINE HYDROCHLORIDE. [Concomitant]
     Active Substance: CLONIDINE HYDROCHLORIDE
  21. HYDRALAZINE HYDROCHLORIDE. [Concomitant]
     Active Substance: HYDRALAZINE HYDROCHLORIDE
  22. ADVIL [Concomitant]
     Active Substance: IBUPROFEN
  23. VOTRIENT [Suspect]
     Active Substance: PAZOPANIB HYDROCHLORIDE
     Indication: PROSTATE CANCER
     Dosage: 800 MG, QD
     Route: 048
     Dates: start: 201412
  24. HYOSCYAMINE SULFATE. [Concomitant]
     Active Substance: HYOSCYAMINE SULFATE
  25. ECOTRIN [Concomitant]
     Active Substance: ASPIRIN
  26. GLIPIZIDE. [Concomitant]
     Active Substance: GLIPIZIDE
  27. TYLENOL [Concomitant]
     Active Substance: ACETAMINOPHEN
  28. RAPAFLO [Concomitant]
     Active Substance: SILODOSIN
  29. NORVASC [Concomitant]
     Active Substance: AMLODIPINE BESYLATE
  30. XANAX [Concomitant]
     Active Substance: ALPRAZOLAM
  31. HUMALOG MIX 25 KWIKPEN [Concomitant]
  32. FINASTERIDE. [Concomitant]
     Active Substance: FINASTERIDE

REACTIONS (9)
  - Inappropriate schedule of drug administration [Unknown]
  - Throat irritation [Unknown]
  - Weight decreased [Unknown]
  - Adverse drug reaction [Unknown]
  - Vomiting [Unknown]
  - Flatulence [Unknown]
  - Nausea [Unknown]
  - Surgery [Unknown]
  - Nasopharyngitis [Unknown]

NARRATIVE: CASE EVENT DATE: 20141218
